FAERS Safety Report 4905363-6 (Version None)
Quarter: 2006Q1

REPORT INFORMATION
  Report Type: 
  Country: None (occurrence: None)
  Receive Date: 20060208
  Receipt Date: 20060202
  Transmission Date: 20060701
  Serious: Yes (Other)
  Sender: FDA-Public Use
  Company Number: CH-AVENTIS-200611017GDDC

PATIENT
  Age: 34 Year
  Sex: Female

DRUGS (7)
  1. FLAGYL [Suspect]
     Indication: SEPSIS
     Route: 048
     Dates: start: 20051103
  2. VFEND [Suspect]
     Indication: CANDIDA SEPSIS
     Route: 048
     Dates: start: 20051030, end: 20051104
  3. VANCOCIN HCL [Suspect]
     Indication: SEPSIS
     Route: 042
     Dates: start: 20051103, end: 20051104
  4. OMEPRAZOLE [Suspect]
     Route: 042
     Dates: start: 20051030
  5. PERFALGAN [Concomitant]
     Route: 042
  6. MAXIPIME [Concomitant]
     Route: 042
     Dates: start: 20051103
  7. FUROSEMIDE [Concomitant]
     Route: 042
     Dates: start: 20051030

REACTIONS (2)
  - CONDITION AGGRAVATED [None]
  - HEPATOCELLULAR DAMAGE [None]
